FAERS Safety Report 10496797 (Version 2)
Quarter: 2014Q4

REPORT INFORMATION
  Report Type: Report from Study
  Country: US (occurrence: US)
  Receive Date: 20141006
  Receipt Date: 20141006
  Transmission Date: 20150528
  Serious: Yes (Hospitalization)
  Sender: FDA-Public Use
  Company Number: US-BIOGENIDEC-2014BI098331

PATIENT
  Age: 21 Year
  Sex: Female

DRUGS (1)
  1. TYSABRI [Suspect]
     Active Substance: NATALIZUMAB
     Indication: MULTIPLE SCLEROSIS
     Route: 042
     Dates: start: 20140707

REACTIONS (6)
  - Incontinence [Unknown]
  - Dizziness [Unknown]
  - Balance disorder [Unknown]
  - Headache [Unknown]
  - Multiple sclerosis relapse [Not Recovered/Not Resolved]
  - Dysphemia [Unknown]

NARRATIVE: CASE EVENT DATE: 20140909
